FAERS Safety Report 15643130 (Version 1)
Quarter: 2018Q4

REPORT INFORMATION
  Report Type: Spontaneous
  Country: US (occurrence: US)
  Receive Date: 20181121
  Receipt Date: 20181121
  Transmission Date: 20190205
  Serious: No
  Sender: FDA-Public Use
  Company Number: US-TEVA-2018-US-976269

PATIENT
  Age: 90 Year
  Sex: Male

DRUGS (2)
  1. MYLAN ACEBUTOLOL [Concomitant]
  2. MEXILETINE [Suspect]
     Active Substance: MEXILETINE
     Indication: EXTRASYSTOLES
     Route: 065
     Dates: start: 2018

REACTIONS (2)
  - Dysphagia [Unknown]
  - Wrong technique in product usage process [Unknown]
